FAERS Safety Report 4898667-7 (Version None)
Quarter: 2006Q1

REPORT INFORMATION
  Report Type: 
  Country: None (occurrence: None)
  Receive Date: 20060202
  Receipt Date: 19990712
  Transmission Date: 20060701
  Serious: Yes (Death, Hospitalization)
  Sender: FDA-Public Use
  Company Number: US-BOEHRINGER INGELHEIM PHARMACEUTICALS, INC.-1999-BP-00828

PATIENT
  Age: 60 Year
  Sex: Male
  Weight: 205 kg

DRUGS (8)
  1. VIRAMUNE [Suspect]
     Indication: ACQUIRED IMMUNODEFICIENCY SYNDROME
     Route: 048
     Dates: start: 19980211, end: 19980814
  2. NELFINAVIR [Suspect]
     Indication: HIV INFECTION
     Route: 048
     Dates: start: 19980211, end: 19980814
  3. DIDANOSINE [Suspect]
     Indication: HIV INFECTION
     Route: 048
     Dates: start: 19980211, end: 19980814
  4. STAVUDINE [Suspect]
     Indication: HIV INFECTION
     Route: 048
     Dates: start: 19980211, end: 19980814
  5. HYDROXYUREA [Suspect]
     Route: 048
     Dates: start: 19980513, end: 19980814
  6. BACTRIM [Concomitant]
  7. ZYRTEC [Concomitant]
  8. VANCENASE [Concomitant]

REACTIONS (8)
  - ASCITES [None]
  - BRADYCARDIA [None]
  - CARDIAC ARREST [None]
  - DISORIENTATION [None]
  - HEPATORENAL SYNDROME [None]
  - HYPOTENSION [None]
  - PANCREATITIS [None]
  - PLEURAL EFFUSION [None]
